FAERS Safety Report 9856116 (Version 1)
Quarter: 2013Q4

REPORT INFORMATION
  Report Type: Spontaneous
  Country: US (occurrence: None)
  Receive Date: 20131226
  Receipt Date: 20131226
  Transmission Date: 20140711
  Serious: No
  Sender: FDA-Public Use
  Company Number: PHEH2013US013308

PATIENT
  Age: 40 Year
  Sex: Female

DRUGS (7)
  1. GILENYA (FINGOLIMOD) CAPSULE, 0.5MG [Suspect]
     Indication: MULTIPLE SCLEROSIS
     Route: 048
     Dates: start: 20130501
  2. VERAMYST (FLUTICASONE FUROATE) [Concomitant]
  3. AMPYRIA (FAMPRIDINE) [Concomitant]
  4. CLONAZEPAM (CLONAZEPAM) (CLONAZEPAM) [Concomitant]
  5. TEGRETOL (CARBAMAZEPINE) UNKNOWN [Concomitant]
  6. TRAMADOL (TRAMADOL) [Concomitant]
  7. CYMBALTA (DULOXETINE HYDROCHLORIDE) [Concomitant]

REACTIONS (4)
  - Nausea [None]
  - Abdominal discomfort [None]
  - Headache [None]
  - Cough [None]
